FAERS Safety Report 4874569-7 (Version None)
Quarter: 2006Q1

REPORT INFORMATION
  Report Type: 
  Country: None (occurrence: None)
  Receive Date: 20060106
  Receipt Date: 20051229
  Transmission Date: 20060701
  Serious: Yes (Other)
  Sender: FDA-Public Use
  Company Number: CH-ABBOTT-06P-151-0321128-00

PATIENT
  Age: 64 Year
  Sex: Male

DRUGS (2)
  1. CYCLOSPORINE [Suspect]
     Indication: IMMUNOSUPPRESSANT DRUG THERAPY
     Dosage: NOT REPORTED
  2. HIGH DOSE STEROIDS [Concomitant]
     Indication: IMMUNOSUPPRESSANT DRUG THERAPY
     Dosage: NOT REPORTED

REACTIONS (4)
  - HYPEROXALURIA [None]
  - METASTASES TO CHEST WALL [None]
  - RENAL FAILURE [None]
  - RENAL IMPAIRMENT [None]
